FAERS Safety Report 8764300 (Version 1)
Quarter: 2012Q4

REPORT INFORMATION
  Report Type: Report from Study
  Country: US (occurrence: US)
  Receive Date: 20120831
  Receipt Date: 20120831
  Transmission Date: 20130627
  Serious: Yes (Other)
  Sender: FDA-Public Use
  Company Number: US-AMGEN-USACT2012054468

PATIENT
  Age: 60 Year
  Sex: Male
  Weight: 93.6 kg

DRUGS (17)
  1. PANITUMUMAB [Suspect]
     Indication: BILE DUCT CANCER
     Dosage: 6 mg, q2wk
     Route: 042
     Dates: start: 20111227
  2. GEMCITABINE [Concomitant]
     Indication: BILE DUCT CANCER
     Dosage: UNK UNK, q2wk
     Route: 042
     Dates: start: 20111206
  3. OXALIPLATIN [Concomitant]
     Indication: BILE DUCT CANCER
     Dosage: UNK UNK, q2wk
     Route: 042
     Dates: start: 20111206
  4. ATENOLOL [Concomitant]
  5. AZITHROMYCIN [Concomitant]
  6. CLOBETASOL PROPIONATE [Concomitant]
  7. CLOTRIMAZOLE [Concomitant]
  8. COLACE [Concomitant]
  9. CREON [Concomitant]
  10. CRESTOR [Concomitant]
  11. HYDROXYZINE HCL [Concomitant]
  12. LISINOPRIL [Concomitant]
  13. MAGNESIUM GLUCONATE [Concomitant]
  14. MINICYCLINE [Concomitant]
  15. OMEPRAZOLE [Concomitant]
  16. ONDANSETRON HCL [Concomitant]
  17. TRAZODONE [Concomitant]

REACTIONS (7)
  - Pneumonitis [Recovering/Resolving]
  - Organising pneumonia [Recovering/Resolving]
  - Respiratory moniliasis [Recovering/Resolving]
  - Tracheobronchitis [Recovering/Resolving]
  - Herpes simplex [Recovering/Resolving]
  - Dyspnoea [Unknown]
  - Fatigue [Unknown]
